FAERS Safety Report 5887557-9 (Version None)
Quarter: 2008Q3

REPORT INFORMATION
  Report Type: 
  Country: None (occurrence: None)
  Receive Date: 20080918
  Receipt Date: 20080910
  Transmission Date: 20090109
  Serious: Yes (Life-Threatening)
  Sender: FDA-Public Use
  Company Number: PHEH2008US08282

PATIENT

DRUGS (1)
  1. LOPRESSOR [Suspect]
     Dosage: UNK
     Dates: start: 20010101, end: 20010101

REACTIONS (3)
  - CARDIAC ARREST [None]
  - CARDIAC PACEMAKER INSERTION [None]
  - CARDIOVERSION [None]
